FAERS Safety Report 9301618 (Version 1)
Quarter: 2013Q2

REPORT INFORMATION
  Report Type: Spontaneous
  Country: US (occurrence: None)
  Receive Date: 20130520
  Receipt Date: 20130520
  Transmission Date: 20140414
  Serious: Yes (Hospitalization)
  Sender: FDA-Public Use
  Company Number: None

PATIENT
  Age: 87 Year
  Sex: Female
  Weight: 68.95 kg

DRUGS (1)
  1. BUPROPION [Suspect]
     Indication: DEPRESSED MOOD
     Route: 048
     Dates: start: 20130503, end: 20130506

REACTIONS (4)
  - Delusion [None]
  - Hallucination, visual [None]
  - Agitation [None]
  - Unresponsive to stimuli [None]
